FAERS Safety Report 12589816 (Version 1)
Quarter: 2016Q3

REPORT INFORMATION
  Report Type: Spontaneous
  Country: US (occurrence: US)
  Receive Date: 20160725
  Receipt Date: 20160725
  Transmission Date: 20161109
  Serious: No
  Sender: FDA-Public Use
  Company Number: US-PFIZER INC-2016334813

PATIENT
  Age: 60 Year
  Sex: Male
  Weight: 94.33 kg

DRUGS (2)
  1. VIAGRA [Suspect]
     Active Substance: SILDENAFIL CITRATE
     Indication: ERECTILE DYSFUNCTION
     Dosage: 100 MG, 1X/DAY
     Route: 048
     Dates: start: 2014
  2. TACROLIMUS. [Concomitant]
     Active Substance: TACROLIMUS
     Indication: LIVER TRANSPLANT
     Dosage: 1 MG IN THE MORNING AND 2 MG AT NIGHT, 2X/DAY
     Route: 048

REACTIONS (3)
  - Drug effect incomplete [Unknown]
  - Drug effect decreased [Unknown]
  - Intentional product use issue [Unknown]
